FAERS Safety Report 19842316 (Version 2)
Quarter: 2021Q4

REPORT INFORMATION
  Report Type: Report from Study
  Country: US (occurrence: US)
  Receive Date: 20210915
  Receipt Date: 20211007
  Transmission Date: 20220303
  Serious: Yes (Hospitalization)
  Sender: FDA-Public Use
  Company Number: US-SEATTLE GENETICS-2021SGN03477

PATIENT
  Age: 58 Year
  Sex: Female

DRUGS (3)
  1. TUCATINIB [Suspect]
     Active Substance: TUCATINIB
     Indication: Breast cancer female
     Dosage: UNK
  2. TUCATINIB [Suspect]
     Active Substance: TUCATINIB
     Dosage: UNK
  3. TUCATINIB [Suspect]
     Active Substance: TUCATINIB
     Dosage: UNK

REACTIONS (9)
  - Brain oedema [Unknown]
  - Cerebrovascular accident [Unknown]
  - Hospitalisation [Unknown]
  - Seizure [Unknown]
  - Vomiting [Unknown]
  - Diarrhoea [Unknown]
  - Liver function test abnormal [Unknown]
  - Scan [Unknown]
  - Product dose omission issue [Unknown]

NARRATIVE: CASE EVENT DATE: 20210909
